FAERS Safety Report 7751527-6 (Version None)
Quarter: 2011Q3

REPORT INFORMATION
  Report Type: 
  Country: None (occurrence: None)
  Receive Date: 20110914
  Receipt Date: 20110907
  Transmission Date: 20111222
  Serious: Yes (Hospitalization, Other)
  Sender: FDA-Public Use
  Company Number: PHHY2011JP77626

PATIENT
  Sex: Male

DRUGS (1)
  1. ZOMETA [Suspect]
     Indication: METASTASES TO BONE
     Dosage: 4 MG, EVERY FOUR WEEKS FOR SIX MONTHS
     Route: 030
     Dates: start: 20110101, end: 20110830

REACTIONS (3)
  - NEOPLASM MALIGNANT [None]
  - BRADYCARDIA [None]
  - NEOPLASM PROGRESSION [None]
